FAERS Safety Report 16893797 (Version 2)
Quarter: 2019Q4

REPORT INFORMATION
  Report Type: Spontaneous
  Country: SI (occurrence: SI)
  Receive Date: 20191008
  Receipt Date: 20191101
  Transmission Date: 20200122
  Serious: Yes (Hospitalization)
  Sender: FDA-Public Use
  Company Number: SI-JNJFOC-20191002957

PATIENT
  Age: 67 Year
  Sex: Male

DRUGS (7)
  1. ASPIRIN PROTEC [Suspect]
     Active Substance: ASPIRIN
     Indication: PRODUCT USED FOR UNKNOWN INDICATION
     Route: 065
  2. PLAVIX [Concomitant]
     Active Substance: CLOPIDOGREL BISULFATE
  3. ROSUVASTATIN CALCIUM W/VALSARTAN [Concomitant]
  4. RIVAROXABAN [Suspect]
     Active Substance: RIVAROXABAN
     Indication: PRODUCT USED FOR UNKNOWN INDICATION
     Dosage: 2.5 MG, BID
     Route: 048
     Dates: start: 2019
  5. PRENESSA [Concomitant]
     Active Substance: PERINDOPRIL
  6. DIUVER [Concomitant]
     Active Substance: TORSEMIDE
  7. OMNIC OCAS [Concomitant]
     Active Substance: TAMSULOSIN HYDROCHLORIDE

REACTIONS (11)
  - Anastomotic stenosis [Unknown]
  - Arterial bypass occlusion [Unknown]
  - Peripheral ischaemia [Unknown]
  - Finger amputation [Unknown]
  - Extremity necrosis [Recovered/Resolved]
  - Arterial bypass occlusion [Unknown]
  - Peripheral ischaemia [Unknown]
  - Peripheral artery stenosis [Unknown]
  - Pain [Unknown]
  - Postoperative wound complication [Recovered/Resolved]
  - Pain [Recovered/Resolved]

NARRATIVE: CASE EVENT DATE: 2016
